FAERS Safety Report 10487296 (Version 2)
Quarter: 2014Q4

REPORT INFORMATION
  Report Type: Report from Study
  Country: CA (occurrence: CA)
  Receive Date: 20141001
  Receipt Date: 20141001
  Transmission Date: 20150528
  Serious: Yes (Other)
  Sender: FDA-Public Use
  Company Number: CA-SA-2014SA105501

PATIENT
  Age: 56 Year
  Sex: Female
  Weight: 77.1 kg

DRUGS (12)
  1. MACROGOL [Concomitant]
     Active Substance: POLYETHYLENE GLYCOLS
     Route: 048
  2. GOLYTELY [Concomitant]
     Active Substance: POLYETHYLENE GLYCOL 3350\POTASSIUM CHLORIDE\SODIUM BICARBONATE\SODIUM CHLORIDE\SODIUM SULFATE ANHYDROUS
  3. OMEGA-3 ACIDS [Concomitant]
     Active Substance: OMEGA-3 FATTY ACIDS
     Route: 048
  4. DOCUSATE SODIUM. [Concomitant]
     Active Substance: DOCUSATE SODIUM
     Indication: CONSTIPATION
     Route: 048
  5. ESTRACE [Concomitant]
     Active Substance: ESTRADIOL
     Route: 048
  6. MULTIVITAMINS [Concomitant]
     Active Substance: VITAMINS
     Route: 048
  7. TIZANIDINE (TIZANIDINE) [Concomitant]
     Active Substance: TIZANIDINE
     Route: 048
  8. BACLOFEN. [Concomitant]
     Active Substance: BACLOFEN
     Route: 048
  9. VENLAFAXINE [Concomitant]
     Active Substance: VENLAFAXINE HYDROCHLORIDE
     Route: 048
  10. CALCIUM [Concomitant]
     Active Substance: CALCIUM
     Route: 048
  11. AUBAGIO [Suspect]
     Active Substance: TERIFLUNOMIDE
     Indication: RELAPSING-REMITTING MULTIPLE SCLEROSIS
     Route: 048
     Dates: start: 20140628
  12. GABAPENTIN. [Concomitant]
     Active Substance: GABAPENTIN
     Route: 048

REACTIONS (8)
  - Insomnia [Recovering/Resolving]
  - Gallbladder obstruction [Unknown]
  - Balance disorder [Recovering/Resolving]
  - Condition aggravated [Recovering/Resolving]
  - Disturbance in attention [Unknown]
  - Abdominal pain upper [Recovering/Resolving]
  - Gastrooesophageal reflux disease [Unknown]
  - Amnesia [Unknown]

NARRATIVE: CASE EVENT DATE: 201407
